FAERS Safety Report 7341517-X (Version None)
Quarter: 2011Q1

REPORT INFORMATION
  Report Type: 
  Country: None (occurrence: None)
  Receive Date: 20110309
  Receipt Date: 20110228
  Transmission Date: 20110831
  Serious: Yes (Life-Threatening, Hospitalization, Other)
  Sender: FDA-Public Use
  Company Number: JP-CEPHALON-2011000320

PATIENT
  Sex: Female

DRUGS (9)
  1. TRISENOX [Suspect]
     Route: 041
     Dates: start: 20101025, end: 20101108
  2. RECOMODULIN [Concomitant]
     Dates: start: 20101008, end: 20101013
  3. DEXART [Concomitant]
     Dates: start: 20101020, end: 20101026
  4. FRAGMIN [Concomitant]
     Dates: start: 20101008, end: 20101101
  5. SAXIZON [Concomitant]
     Dates: start: 20101016, end: 20101109
  6. DEXART [Concomitant]
     Indication: ACUTE PROMYELOCYTIC LEUKAEMIA
     Dates: start: 20101020, end: 20101103
  7. TRISENOX [Suspect]
     Indication: ACUTE PROMYELOCYTIC LEUKAEMIA
     Route: 041
     Dates: start: 20101012, end: 20101016
  8. IDAMYCIN [Suspect]
  9. MAXIPIME [Concomitant]
     Dates: start: 20101016, end: 20101025

REACTIONS (11)
  - ACUTE PROMYELOCYTIC LEUKAEMIA DIFFERENTIATION SYNDROME [None]
  - ACUTE RESPIRATORY FAILURE [None]
  - GINGIVAL ULCERATION [None]
  - CHILLS [None]
  - PYREXIA [None]
  - HYPOXIA [None]
  - PULMONARY ALVEOLAR HAEMORRHAGE [None]
  - APHTHOUS STOMATITIS [None]
  - COUGH [None]
  - RESPIRATORY DISTRESS [None]
  - GASTROINTESTINAL HAEMORRHAGE [None]
